FAERS Safety Report 9912748 (Version 1)
Quarter: 2014Q1

REPORT INFORMATION
  Report Type: Spontaneous
  Country: US (occurrence: None)
  Receive Date: 20140218
  Receipt Date: 20140218
  Transmission Date: 20141002
  Serious: Yes (Other)
  Sender: FDA-Public Use
  Company Number: None

PATIENT
  Age: 34 Year
  Sex: Female
  Weight: 53.98 kg

DRUGS (1)
  1. DYSPORT [Suspect]

REACTIONS (5)
  - Dizziness [None]
  - Headache [None]
  - Injection site mass [None]
  - Headache [None]
  - Vision blurred [None]
